FAERS Safety Report 25525412 (Version 1)
Quarter: 2025Q3

REPORT INFORMATION
  Report Type: Spontaneous
  Country: US (occurrence: US)
  Receive Date: 20250707
  Receipt Date: 20250707
  Transmission Date: 20251020
  Serious: Yes (Other)
  Sender: MYLAN
  Company Number: US-MYLANLABS-2025M1055419

PATIENT
  Age: 5 Year
  Sex: Male

DRUGS (48)
  1. ACETAMINOPHEN [Suspect]
     Active Substance: ACETAMINOPHEN
     Indication: Headache
  2. ACETAMINOPHEN [Suspect]
     Active Substance: ACETAMINOPHEN
     Route: 065
  3. ACETAMINOPHEN [Suspect]
     Active Substance: ACETAMINOPHEN
     Route: 065
  4. ACETAMINOPHEN [Suspect]
     Active Substance: ACETAMINOPHEN
  5. IBUPROFEN [Suspect]
     Active Substance: IBUPROFEN
     Indication: Headache
  6. IBUPROFEN [Suspect]
     Active Substance: IBUPROFEN
     Route: 065
  7. IBUPROFEN [Suspect]
     Active Substance: IBUPROFEN
     Route: 065
  8. IBUPROFEN [Suspect]
     Active Substance: IBUPROFEN
  9. CYPROHEPTADINE [Suspect]
     Active Substance: CYPROHEPTADINE
     Indication: Prophylaxis
  10. CYPROHEPTADINE [Suspect]
     Active Substance: CYPROHEPTADINE
     Route: 065
  11. CYPROHEPTADINE [Suspect]
     Active Substance: CYPROHEPTADINE
     Route: 065
  12. CYPROHEPTADINE [Suspect]
     Active Substance: CYPROHEPTADINE
  13. OXCARBAZEPINE [Suspect]
     Active Substance: OXCARBAZEPINE
     Indication: Prophylaxis
  14. OXCARBAZEPINE [Suspect]
     Active Substance: OXCARBAZEPINE
     Route: 065
  15. OXCARBAZEPINE [Suspect]
     Active Substance: OXCARBAZEPINE
     Route: 065
  16. OXCARBAZEPINE [Suspect]
     Active Substance: OXCARBAZEPINE
  17. METOCLOPRAMIDE [Suspect]
     Active Substance: METOCLOPRAMIDE
     Indication: Headache
  18. METOCLOPRAMIDE [Suspect]
     Active Substance: METOCLOPRAMIDE
     Route: 065
  19. METOCLOPRAMIDE [Suspect]
     Active Substance: METOCLOPRAMIDE
     Route: 065
  20. METOCLOPRAMIDE [Suspect]
     Active Substance: METOCLOPRAMIDE
  21. PROPRANOLOL [Suspect]
     Active Substance: PROPRANOLOL HYDROCHLORIDE
     Indication: Prophylaxis
  22. PROPRANOLOL [Suspect]
     Active Substance: PROPRANOLOL HYDROCHLORIDE
     Route: 065
  23. PROPRANOLOL [Suspect]
     Active Substance: PROPRANOLOL HYDROCHLORIDE
     Route: 065
  24. PROPRANOLOL [Suspect]
     Active Substance: PROPRANOLOL HYDROCHLORIDE
  25. DIPHENHYDRAMINE [Suspect]
     Active Substance: DIPHENHYDRAMINE
     Indication: Headache
  26. DIPHENHYDRAMINE [Suspect]
     Active Substance: DIPHENHYDRAMINE
     Route: 065
  27. DIPHENHYDRAMINE [Suspect]
     Active Substance: DIPHENHYDRAMINE
     Route: 065
  28. DIPHENHYDRAMINE [Suspect]
     Active Substance: DIPHENHYDRAMINE
  29. RIZATRIPTAN [Suspect]
     Active Substance: RIZATRIPTAN
     Indication: Headache
  30. RIZATRIPTAN [Suspect]
     Active Substance: RIZATRIPTAN
     Route: 065
  31. RIZATRIPTAN [Suspect]
     Active Substance: RIZATRIPTAN
     Route: 065
  32. RIZATRIPTAN [Suspect]
     Active Substance: RIZATRIPTAN
  33. MELATONIN [Suspect]
     Active Substance: MELATONIN
     Indication: Prophylaxis
  34. MELATONIN [Suspect]
     Active Substance: MELATONIN
     Route: 065
  35. MELATONIN [Suspect]
     Active Substance: MELATONIN
     Route: 065
  36. MELATONIN [Suspect]
     Active Substance: MELATONIN
  37. ZONISAMIDE [Suspect]
     Active Substance: ZONISAMIDE
     Indication: Prophylaxis
  38. ZONISAMIDE [Suspect]
     Active Substance: ZONISAMIDE
     Indication: Epilepsy
     Route: 065
  39. ZONISAMIDE [Suspect]
     Active Substance: ZONISAMIDE
     Route: 065
  40. ZONISAMIDE [Suspect]
     Active Substance: ZONISAMIDE
  41. ONDANSETRON [Concomitant]
     Active Substance: ONDANSETRON
     Indication: Nausea
  42. ONDANSETRON [Concomitant]
     Active Substance: ONDANSETRON
     Indication: Vomiting
     Route: 048
  43. ONDANSETRON [Concomitant]
     Active Substance: ONDANSETRON
     Route: 048
  44. ONDANSETRON [Concomitant]
     Active Substance: ONDANSETRON
  45. Immune globulin [Concomitant]
     Indication: Epilepsy
  46. Immune globulin [Concomitant]
     Route: 042
  47. Immune globulin [Concomitant]
     Route: 042
  48. Immune globulin [Concomitant]

REACTIONS (2)
  - Therapy non-responder [Unknown]
  - Off label use [Unknown]
